FAERS Safety Report 6681224-X (Version None)
Quarter: 2010Q2

REPORT INFORMATION
  Report Type: 
  Country: None (occurrence: None)
  Receive Date: 20100414
  Receipt Date: 20090626
  Transmission Date: 20101027
  Serious: No
  Sender: FDA-Public Use
  Company Number: US-KINGPHARMUSA00001-K200900768

PATIENT
  Age: 53 Year
  Sex: Female
  Weight: 77.098 kg

DRUGS (7)
  1. SKELAXIN [Suspect]
     Indication: BACK PAIN
     Dosage: 800 MG, QD
     Route: 048
     Dates: start: 20090619, end: 20090624
  2. LEXAPRO [Concomitant]
     Dosage: UNK
  3. KLONOPIN [Concomitant]
     Dosage: UNK
  4. VENLAFAXINE HCL [Concomitant]
     Dosage: UNK
  5. THYROID TAB [Concomitant]
     Dosage: UNK
  6. ACIPHEX [Concomitant]
     Dosage: UNK
  7. TOPAMAX [Concomitant]
     Dosage: UNK

REACTIONS (2)
  - FATIGUE [None]
  - INCREASED TENDENCY TO BRUISE [None]
